FAERS Safety Report 4441239-9 (Version None)
Quarter: 2004Q3

REPORT INFORMATION
  Report Type: 
  Country: None (occurrence: None)
  Receive Date: 20040728
  Receipt Date: 20040220
  Transmission Date: 20050211
  Serious: No
  Sender: FDA-Public Use
  Company Number: USA040260026

PATIENT
  Age: 41 Year
  Sex: Female

DRUGS (1)
  1. STRATTERA [Suspect]
     Dosage: 80 MG DAY

REACTIONS (3)
  - HOT FLUSH [None]
  - RASH [None]
  - SLEEP DISORDER [None]
